FAERS Safety Report 8541994-2 (Version None)
Quarter: 2012Q3

REPORT INFORMATION
  Report Type: 
  Country: None (occurrence: None)
  Receive Date: 20120726
  Receipt Date: 20110928
  Transmission Date: 20120928
  Serious: No
  Sender: FDA-Public Use
  Company Number: US-ASTRAZENECA-2011SE58586

PATIENT
  Sex: Female

DRUGS (2)
  1. SEROQUEL [Suspect]
     Route: 048
     Dates: start: 20110927
  2. SEROQUEL [Suspect]
     Route: 048
     Dates: start: 20110927

REACTIONS (3)
  - FIBROMYALGIA [None]
  - INNER EAR DISORDER [None]
  - VERTIGO [None]
